FAERS Safety Report 7313734-6 (Version None)
Quarter: 2011Q1

REPORT INFORMATION
  Report Type: 
  Country: None (occurrence: None)
  Receive Date: 20110218
  Receipt Date: 20110218
  Transmission Date: 20110831
  Serious: Yes (Disabling, Other)
  Sender: FDA-Public Use
  Company Number: None

PATIENT
  Age: 52 Year
  Sex: Female
  Weight: 56.6996 kg

DRUGS (1)
  1. CIPROFLOXACIN HCL [Suspect]
     Indication: CYSTITIS ESCHERICHIA
     Dosage: 500 MG 2XPER DAY PO (11 PILLS TAKEN)
     Route: 048
     Dates: start: 20110209, end: 20110215

REACTIONS (7)
  - MUSCULOSKELETAL STIFFNESS [None]
  - ARTHRALGIA [None]
  - TENDON INJURY [None]
  - HEADACHE [None]
  - BACK PAIN [None]
  - POISONING [None]
  - INSOMNIA [None]
